FAERS Safety Report 18435149 (Version 2)
Quarter: 2021Q1

REPORT INFORMATION
  Report Type: Spontaneous
  Country: CN (occurrence: CN)
  Receive Date: 20201027
  Receipt Date: 20210116
  Transmission Date: 20210419
  Serious: Yes (Hospitalization)
  Sender: FDA-Public Use
  Company Number: CN-B.BRAUN MEDICAL INC.-2093206

PATIENT
  Age: 51 Year
  Sex: Female
  Weight: 55 kg

DRUGS (2)
  1. SODIUM CHLORIDE INJECTION USP 0264?7800?09 [Suspect]
     Active Substance: SODIUM CHLORIDE
     Route: 042
     Dates: start: 20200816, end: 20200816
  2. ACETYLGLUTAMINE [Concomitant]
     Route: 042

REACTIONS (2)
  - Chills [Recovered/Resolved]
  - Pyrexia [Recovered/Resolved]

NARRATIVE: CASE EVENT DATE: 20200816
